FAERS Safety Report 4518405-7 (Version None)
Quarter: 2004Q4

REPORT INFORMATION
  Report Type: 
  Country: None (occurrence: None)
  Receive Date: 20041202
  Receipt Date: 20041126
  Transmission Date: 20050328
  Serious: Yes (Life-Threatening, Other)
  Sender: FDA-Public Use
  Company Number: FRWYE237826NOV04

PATIENT
  Age: 42 Year
  Sex: Female

DRUGS (1)
  1. ETHINYL ESTRADIOL AND LEVONORGESTREL [Suspect]
     Indication: CONTRACEPTION
     Dosage: 1 TABLET 1X PER 1 DAY
     Route: 048
     Dates: start: 20040115, end: 20040815

REACTIONS (3)
  - CEREBROVASCULAR ACCIDENT [None]
  - DYSARTHRIA [None]
  - HEMIANOPIA [None]
